FAERS Safety Report 12466604 (Version 1)
Quarter: 2016Q2

REPORT INFORMATION
  Report Type: Spontaneous
  Country: FR (occurrence: FR)
  Receive Date: 20160615
  Receipt Date: 20160615
  Transmission Date: 20160815
  Serious: Yes (Hospitalization)
  Sender: FDA-Public Use
  Company Number: FR-ROCHE-1774914

PATIENT
  Age: 59 Year
  Sex: Male

DRUGS (2)
  1. IMMUNOGLOBULIN [Concomitant]
     Active Substance: HUMAN IMMUNOGLOBULIN G
     Indication: BICYTOPENIA
  2. MABTHERA [Suspect]
     Active Substance: RITUXIMAB
     Indication: BICYTOPENIA
     Route: 041
     Dates: start: 20140718, end: 20140808

REACTIONS (1)
  - Organising pneumonia [Not Recovered/Not Resolved]

NARRATIVE: CASE EVENT DATE: 201601
